FAERS Safety Report 7935879 (Version 2)
Quarter: 2018Q2

REPORT INFORMATION
  Report Type: Spontaneous
  Country: ES (occurrence: ES)
  Receive Date: 20110509
  Receipt Date: 20180620
  Transmission Date: 20180711
  Serious: Yes (Other)
  Sender: FDA-Public Use
  Company Number: ES-ELI_LILLY_AND_COMPANY-ES200608002664

PATIENT
  Age: 48 Year
  Sex: Female
  Weight: 52 kg

DRUGS (1)
  1. ZYPREXA [Suspect]
     Active Substance: OLANZAPINE
     Indication: PRODUCT USED FOR UNKNOWN INDICATION
     Dosage: 7.5 MG, DAILY (1/D)
     Route: 048
     Dates: start: 20060706

REACTIONS (4)
  - Tremor [Unknown]
  - Somnambulism [Unknown]
  - Dry mouth [Unknown]
  - Somnolence [Unknown]

NARRATIVE: CASE EVENT DATE: 20060706
